FAERS Safety Report 5079928-8 (Version None)
Quarter: 2006Q3

REPORT INFORMATION
  Report Type: 
  Country: None (occurrence: None)
  Receive Date: 20060815
  Receipt Date: 20060803
  Transmission Date: 20061208
  Serious: Yes (Hospitalization)
  Sender: FDA-Public Use
  Company Number: FR-BRISTOL-MYERS SQUIBB COMPANY-13472634

PATIENT
  Age: 36 Year
  Sex: Male

DRUGS (6)
  1. ENDOXAN [Suspect]
     Route: 042
     Dates: start: 20060320, end: 20060320
  2. ZOPHREN [Suspect]
     Dates: start: 20060320, end: 20060320
  3. NEURONTIN [Concomitant]
  4. RIVOTRIL [Concomitant]
  5. TROSPIUM CHLORIDE [Concomitant]
     Dates: start: 20060623
  6. AVONEX [Concomitant]
     Dates: start: 20030101, end: 20060301

REACTIONS (1)
  - TRANSAMINASES INCREASED [None]
